FAERS Safety Report 8338452-7 (Version None)
Quarter: 2012Q2

REPORT INFORMATION
  Report Type: 
  Country: None (occurrence: None)
  Receive Date: 20120504
  Receipt Date: 20120403
  Transmission Date: 20120825
  Serious: Yes (Death, Hospitalization, Other)
  Sender: FDA-Public Use
  Company Number: JP-VALEANT-2012VX001942

PATIENT
  Age: 78 Year
  Sex: Male

DRUGS (12)
  1. ALL OTHER THERAPEUTIC PRODUCTS [Suspect]
     Indication: RECTAL CANCER
     Route: 041
     Dates: start: 20101001
  2. CIPROFLOXACIN [Concomitant]
     Route: 065
  3. PANITUMUMAB [Suspect]
     Route: 065
     Dates: start: 20101001
  4. PREDNISOLONE [Concomitant]
     Route: 065
  5. WARFARIN SODIUM [Suspect]
     Indication: RECTAL CANCER
     Route: 065
  6. CEFEPIME HYDROCHLORIDE [Concomitant]
     Route: 065
  7. IMIPENEM AND CILASTATIN SODIUM [Concomitant]
     Route: 065
  8. METHYLPREDNISOLONE SODIUM SUCCINATE [Concomitant]
     Route: 065
  9. FLUOROURACIL [Suspect]
     Indication: RECTAL CANCER
     Route: 040
     Dates: start: 20101001
  10. OXALIPLATIN [Suspect]
     Indication: RECTAL CANCER
     Route: 041
     Dates: start: 20101001
  11. LEUCOVORIN CALCIUM [Concomitant]
     Route: 065
     Dates: start: 20101001
  12. UFT [Concomitant]
     Route: 065

REACTIONS (6)
  - PYREXIA [None]
  - PNEUMONIA [None]
  - DRUG INTERACTION [None]
  - OESOPHAGEAL ULCER HAEMORRHAGE [None]
  - INTERSTITIAL LUNG DISEASE [None]
  - COAGULOPATHY [None]
